FAERS Safety Report 24673909 (Version 1)
Quarter: 2024Q4

REPORT INFORMATION
  Report Type: Report from Study
  Country: CA (occurrence: CA)
  Receive Date: 20241128
  Receipt Date: 20241128
  Transmission Date: 20250115
  Serious: Yes (Other)
  Sender: AMGEN
  Company Number: CA-002147023-NVSC2024CA224977

PATIENT
  Sex: Female

DRUGS (1)
  1. AIMOVIG [Suspect]
     Active Substance: ERENUMAB-AOOE
     Indication: Migraine
     Dosage: UNK (ROUTE: INJECTABLE)
     Route: 065
     Dates: start: 20200205

REACTIONS (2)
  - Migraine [Unknown]
  - Inappropriate schedule of product administration [Unknown]
